FAERS Safety Report 13125392 (Version 1)
Quarter: 2017Q1

REPORT INFORMATION
  Report Type: Report from Study
  Country: NL (occurrence: NL)
  Receive Date: 20170118
  Receipt Date: 20170118
  Transmission Date: 20170428
  Serious: Yes (Other)
  Sender: FDA-Public Use
  Company Number: NL-AMGEN-NLDSL2017005278

PATIENT
  Age: 70 Year
  Sex: Male

DRUGS (26)
  1. FENTANYL. [Concomitant]
     Active Substance: FENTANYL
     Dosage: 25 MUG, UNK
     Dates: start: 20160913
  2. XGEVA [Suspect]
     Active Substance: DENOSUMAB
     Indication: PRODUCT USED FOR UNKNOWN INDICATION
     Dosage: 120 MG, Q4WK
     Route: 058
     Dates: start: 20160418
  3. PERINDOPRIL GLENMARK [Concomitant]
     Dosage: 4 MG, QD
     Dates: start: 20161012, end: 20170109
  4. TAMSULOSINE [Concomitant]
     Active Substance: TAMSULOSIN HYDROCHLORIDE
     Dosage: 0.4 MG, QD
     Dates: start: 20160419, end: 20161014
  5. METOPROLOL. [Concomitant]
     Active Substance: METOPROLOL
     Dosage: 50 MG, QD
     Dates: start: 20160705, end: 20161102
  6. SILODOSINE [Concomitant]
     Active Substance: SILODOSIN
     Dosage: 8 MG, QD
     Dates: start: 20161014, end: 20161112
  7. PARACETAMOL [Concomitant]
     Active Substance: ACETAMINOPHEN
     Dosage: 1000 MG, UNK
     Dates: start: 20161021, end: 20161027
  8. XGEVA [Suspect]
     Active Substance: DENOSUMAB
     Dosage: UNK
     Route: 058
     Dates: start: 20160930
  9. XGEVA [Suspect]
     Active Substance: DENOSUMAB
     Dosage: UNK
     Route: 058
     Dates: start: 20161125, end: 20161229
  10. CETOMACROGOL [Concomitant]
     Active Substance: COSMETICS
     Dosage: UNK UNK, QD
     Dates: start: 20160805, end: 20161112
  11. CYANOCOBALAMINE [Concomitant]
     Active Substance: CYANOCOBALAMIN
     Dosage: 1000 MUG, QD
     Dates: start: 20160930
  12. XGEVA [Suspect]
     Active Substance: DENOSUMAB
     Dosage: UNK
     Route: 058
     Dates: start: 20161027, end: 20161130
  13. ACETYLSALICYLZUUR [Concomitant]
     Active Substance: ASPIRIN
     Dosage: 80 MG, QD
     Dates: start: 20160705, end: 20161102
  14. CLOPIDOGREL [Concomitant]
     Active Substance: CLOPIDOGREL BISULFATE
     Dosage: UNK
     Dates: start: 20161118, end: 20161215
  15. MACROGOL [Concomitant]
     Active Substance: POLYETHYLENE GLYCOLS
     Dosage: UNK UNK, QD
     Dates: start: 20160805, end: 20161102
  16. DULCOLAX NOS [Concomitant]
     Active Substance: BISACODYL OR DOCUSATE SODIUM
     Dosage: UNK
     Dates: start: 20161021, end: 20161026
  17. CALCIUM CARBONATE W/COLECALCIFEROL [Concomitant]
     Active Substance: CALCIUM CARBONATE\CHOLECALCIFEROL
     Dosage: UNK
     Dates: start: 20161027, end: 20161125
  18. SENNOSIDE A+B [Concomitant]
     Active Substance: SENNOSIDES A AND B
     Dosage: 2 MG/ML, QD
     Dates: start: 20161027, end: 20161105
  19. OXYCODON [Concomitant]
     Active Substance: OXYCODONE
     Dosage: 10 MG, UNK
     Dates: start: 20161108
  20. PANTOPRAZOL [Concomitant]
     Active Substance: PANTOPRAZOLE SODIUM
     Dosage: UNK
     Dates: start: 20161118, end: 20161217
  21. PERINDOPRIL [Concomitant]
     Active Substance: PERINDOPRIL
     Dosage: 2 MG, QD
  22. DOCETAXEL. [Concomitant]
     Active Substance: DOCETAXEL
     Dosage: 20 MG/ML, UNK
     Dates: start: 20160418
  23. OMECAT [Concomitant]
     Dosage: 40 MG, QD
     Dates: start: 20160628, end: 20161120
  24. PREDNISOLON [Concomitant]
     Active Substance: PREDNISOLONE
     Dosage: 5 MG, BID
     Dates: start: 20160913
  25. FERROGLUKONAT [Concomitant]
     Dosage: 695 MG, QD
     Dates: start: 20160930, end: 20161013
  26. ROSUVASTATINE [Concomitant]
     Active Substance: ROSUVASTATIN
     Dosage: 10 MG, QD
     Dates: start: 20160419, end: 20160711

REACTIONS (6)
  - Prostate cancer metastatic [Unknown]
  - Coronary artery disease [Unknown]
  - Coronary artery stenosis [Unknown]
  - Cardiomyopathy [Unknown]
  - Ejection fraction abnormal [Unknown]
  - Anaemia [Unknown]

NARRATIVE: CASE EVENT DATE: 20160713
